FAERS Safety Report 21223753 (Version 5)
Quarter: 2022Q4

REPORT INFORMATION
  Report Type: Spontaneous
  Country: GB (occurrence: GB)
  Receive Date: 20220817
  Receipt Date: 20221013
  Transmission Date: 20230112
  Serious: Yes (Other)
  Sender: FDA-Public Use
  Company Number: GB-PFIZER INC-PV202200038911

PATIENT
  Age: 56 Year
  Sex: Female

DRUGS (5)
  1. PACLITAXEL [Suspect]
     Active Substance: PACLITAXEL
     Indication: Anal cancer
     Dosage: 144MG IN 274 ML, STARTED AT INFUSION RATE 290 ML/HR AND DECREASED TO 129 ML/HR
     Route: 042
     Dates: start: 20220805, end: 20220805
  2. DEXAMETHASONE SODIUM PHOSPHATE [Suspect]
     Active Substance: DEXAMETHASONE SODIUM PHOSPHATE
     Indication: Premedication
     Dosage: 8 MG IN 274 ML, (STARTED AT INFUSION RATE 290 ML/HR AND DECREASED TO 129 ML/HR)
     Route: 042
     Dates: start: 20220805, end: 20220805
  3. SODIUM CHLORIDE [Suspect]
     Active Substance: SODIUM CHLORIDE
     Indication: Medication dilution
     Dosage: STARTED AT INFUSION RATE 290 ML/HR AND DECREASED TO 129 ML/HR
     Route: 042
     Dates: start: 20220805, end: 20220805
  4. SODIUM CHLORIDE [Suspect]
     Active Substance: SODIUM CHLORIDE
     Dosage: UNK
  5. CHLORPHENIRAMINE MALEATE [Suspect]
     Active Substance: CHLORPHENIRAMINE MALEATE
     Indication: Premedication
     Dosage: 10 MG
     Route: 042
     Dates: start: 20220805, end: 20220805

REACTIONS (4)
  - Erythema [Recovering/Resolving]
  - Flushing [Recovering/Resolving]
  - Paraesthesia [Recovering/Resolving]
  - Off label use [Unknown]

NARRATIVE: CASE EVENT DATE: 20220805
